FAERS Safety Report 9264069 (Version 1)
Quarter: 2013Q2

REPORT INFORMATION
  Report Type: Spontaneous
  Country: US (occurrence: US)
  Receive Date: 20130430
  Receipt Date: 20130430
  Transmission Date: 20140414
  Serious: Yes (Death)
  Sender: FDA-Public Use
  Company Number: US-BAYER-2013-051240

PATIENT
  Sex: Male

DRUGS (1)
  1. CAMPHO-PHENIQUE ANTISEPTIC LIQUID [Suspect]

REACTIONS (2)
  - Death [Fatal]
  - Off label use [None]
